FAERS Safety Report 11680612 (Version 2)
Quarter: 2015Q4

REPORT INFORMATION
  Report Type: Spontaneous
  Country: US (occurrence: US)
  Receive Date: 20151027
  Receipt Date: 20151104
  Transmission Date: 20160304
  Serious: No
  Sender: FDA-Public Use
  Company Number: US-ELI_LILLY_AND_COMPANY-US201011002362

PATIENT
  Age: 74 Year
  Sex: Female

DRUGS (26)
  1. DOLOBID [Concomitant]
     Active Substance: DIFLUNISAL
  2. CHOLESTYRAMINE. [Concomitant]
     Active Substance: CHOLESTYRAMINE
  3. FORTEO [Suspect]
     Active Substance: TERIPARATIDE
     Dosage: 20 UG, QD
     Route: 065
  4. NEURONTIN [Concomitant]
     Active Substance: GABAPENTIN
  5. CULTURELLE [Concomitant]
     Active Substance: LACTOBACILLUS RHAMNOSUS
  6. FOLIC ACID. [Concomitant]
     Active Substance: FOLIC ACID
  7. PREDNISONE. [Concomitant]
     Active Substance: PREDNISONE
  8. METHOTREXATE [Concomitant]
     Active Substance: METHOTREXATE
  9. LEUCOVORIN. [Concomitant]
     Active Substance: LEUCOVORIN
  10. ESTRACE [Concomitant]
     Active Substance: ESTRADIOL
     Indication: URINARY TRACT INFECTION
  11. FORTEO [Suspect]
     Active Substance: TERIPARATIDE
     Dosage: 20 UG, DAILY (1/D)
     Route: 065
  12. SYNTHROID [Concomitant]
     Active Substance: LEVOTHYROXINE SODIUM
  13. VITAMIN C [Concomitant]
     Active Substance: ASCORBIC ACID
  14. POTASSIUM [Concomitant]
     Active Substance: POTASSIUM
  15. FORTEO [Suspect]
     Active Substance: TERIPARATIDE
     Dosage: 20 UG, DAILY (1/D)
     Route: 065
     Dates: start: 201009, end: 201010
  16. LASIX [Concomitant]
     Active Substance: FUROSEMIDE
  17. FORTEO [Suspect]
     Active Substance: TERIPARATIDE
     Indication: OSTEOPOROSIS
     Dosage: 20 UG, DAILY (1/D)
     Route: 065
     Dates: start: 2009
  18. INDERAL [Concomitant]
     Active Substance: PROPRANOLOL HYDROCHLORIDE
  19. VITAMIN D [Concomitant]
     Active Substance: CHOLECALCIFEROL
  20. MAGNESIUM [Concomitant]
     Active Substance: MAGNESIUM
  21. PREVACID [Concomitant]
     Active Substance: LANSOPRAZOLE
  22. METHENAMINE [Concomitant]
     Active Substance: METHENAMINE
  23. MORPHINE [Concomitant]
     Active Substance: MORPHINE
  24. CALCIUM [Concomitant]
     Active Substance: CALCIUM
  25. ZINC [Concomitant]
     Active Substance: ZINC\ZINC CHLORIDE
  26. THERAGRAN [Concomitant]
     Active Substance: VITAMINS
     Indication: URINARY TRACT INFECTION

REACTIONS (11)
  - Arthralgia [Unknown]
  - Poor quality drug administered [Unknown]
  - Dyspnoea [Unknown]
  - Dysstasia [Unknown]
  - Palpitations [Unknown]
  - Hypertension [Unknown]
  - Nausea [Unknown]
  - Pain in extremity [Unknown]
  - Visual impairment [Unknown]
  - Spinal fracture [Unknown]
  - Blood pressure fluctuation [Unknown]

NARRATIVE: CASE EVENT DATE: 2009
